FAERS Safety Report 4733381-X (Version None)
Quarter: 2005Q3

REPORT INFORMATION
  Report Type: 
  Country: None (occurrence: None)
  Receive Date: 20050801
  Receipt Date: 20050721
  Transmission Date: 20060218
  Serious: Yes (Other)
  Sender: FDA-Public Use
  Company Number: 2005087101

PATIENT
  Sex: Female
  Weight: 171.4597 kg

DRUGS (12)
  1. CELEBREX [Suspect]
     Indication: OSTEOARTHRITIS
     Dosage: 400 MG (200 MG 2 IN 1 D) ORAL
     Route: 048
  2. K-DUR 10 [Concomitant]
  3. COUMADIN [Concomitant]
  4. SYNTHROID [Concomitant]
  5. VERAPAMIL [Concomitant]
  6. GLUCOPHAGE [Concomitant]
  7. ACTOS [Concomitant]
  8. COZAAR [Concomitant]
  9. PROVERA [Concomitant]
  10. BUMEX [Concomitant]
  11. DOXAZOSIN (DOXAZOSIN) [Concomitant]
  12. LANOXIN [Concomitant]

REACTIONS (8)
  - ABASIA [None]
  - BEDRIDDEN [None]
  - CELLULITIS [None]
  - CRYING [None]
  - INFECTION [None]
  - INSOMNIA [None]
  - PAIN [None]
  - POLLAKIURIA [None]
